FAERS Safety Report 22083830 (Version 3)
Quarter: 2023Q1

REPORT INFORMATION
  Report Type: Other
  Country: US (occurrence: None)
  Receive Date: 20230310
  Receipt Date: 20230322
  Transmission Date: 20230417
  Serious: Yes (Hospitalization)
  Sender: FDA-Public Use
  Company Number: US-ROCHE-3233133

PATIENT
  Age: 90 Year
  Sex: Female

DRUGS (25)
  1. XELODA [Suspect]
     Active Substance: CAPECITABINE
     Indication: Malignant neoplasm of ampulla of Vater
     Dosage: TAKE 1 TABLET BY MOUTH TWICE A DAY 2 WEEK(S) ON, 1 WEEK(S) OFF TAKE WITH 150MG TAB FOR 650MG TOTAL D
     Route: 048
     Dates: start: 20220927
  2. XELODA [Suspect]
     Active Substance: CAPECITABINE
     Indication: Metastases to lung
     Dosage: TAKE 1 TABLET BY MOUTH TWICE A DAY 2 WEEK(S) ON, 1 WEEK(S) OFF TAKE WITH 500MG TAB FOR 650MG TOTAL D
     Route: 048
     Dates: start: 20220927
  3. XELODA [Suspect]
     Active Substance: CAPECITABINE
     Dosage: TAKE 1 TABLET BY MOUTH TWICE A DAY 2 WEEK(S) ON, 1 WEEK(S) OFF TAKE WITH 150MG TABLET FOR A TOTAL OF
     Route: 048
  4. XELODA [Suspect]
     Active Substance: CAPECITABINE
     Dosage: TAKE 1 TABLET BY MOUTH TWICE A DAY 2 WEEK(S) ON, 1 WEEK(S) OFF TAKE WITH 500MG TABLET FOR A TOTAL OF
     Route: 048
  5. CINNAMON [Concomitant]
     Active Substance: CINNAMON
  6. LOMOTIL [Concomitant]
     Active Substance: ATROPINE SULFATE\DIPHENOXYLATE HYDROCHLORIDE
  7. LASIX [Concomitant]
     Active Substance: FUROSEMIDE
  8. NEURONTIN [Concomitant]
     Active Substance: GABAPENTIN
  9. NORCO [Concomitant]
     Active Substance: ACETAMINOPHEN\HYDROCODONE BITARTRATE
  10. CHRONULAC [Concomitant]
     Active Substance: LACTULOSE
  11. XALATAN [Concomitant]
     Active Substance: LATANOPROST
  12. SYNTHROID [Concomitant]
     Active Substance: LEVOTHYROXINE SODIUM
  13. EMLA [Concomitant]
     Active Substance: LIDOCAINE\PRILOCAINE
  14. IMODIUM [Concomitant]
     Active Substance: LOPERAMIDE HYDROCHLORIDE
  15. LORATADINE [Concomitant]
     Active Substance: LORATADINE
  16. TOPROL XL [Concomitant]
     Active Substance: METOPROLOL SUCCINATE
  17. FISH OIL [Concomitant]
     Active Substance: FISH OIL
  18. ZOFRAN [Concomitant]
     Active Substance: ONDANSETRON HYDROCHLORIDE
  19. POTASSIUM [Concomitant]
     Active Substance: POTASSIUM
  20. COMPAZINE [Concomitant]
     Active Substance: PROCHLORPERAZINE MALEATE
  21. METAMUCIL [Concomitant]
     Active Substance: PLANTAGO SEED
  22. SENNA LAXATIVE [Concomitant]
     Active Substance: SENNOSIDES
  23. ALDACTONE [Concomitant]
     Active Substance: SPIRONOLACTONE
  24. TOVIAZ [Concomitant]
     Active Substance: FESOTERODINE FUMARATE
  25. XYLOCAINE [Concomitant]
     Active Substance: LIDOCAINE HYDROCHLORIDE

REACTIONS (3)
  - Off label use [Unknown]
  - Urinary tract infection [Unknown]
  - Dizziness [Unknown]
